FAERS Safety Report 9376005 (Version 1)
Quarter: 2013Q2

REPORT INFORMATION
  Report Type: Spontaneous
  Country: US (occurrence: US)
  Receive Date: 20130629
  Receipt Date: 20130629
  Transmission Date: 20140414
  Serious: No
  Sender: FDA-Public Use
  Company Number: US-B.I. PHARMACEUTICALS,INC./RIDGEFIELD-2013-BI-07544BP

PATIENT
  Age: 73 Year
  Sex: Female
  Weight: 60 kg

DRUGS (2)
  1. ATROVENT [Suspect]
     Indication: EMPHYSEMA
     Dosage: 136 MCG
     Route: 055
     Dates: start: 2009
  2. ATROVENT [Suspect]
     Dosage: 68 MCG
     Route: 055

REACTIONS (4)
  - Dyspnoea [Not Recovered/Not Resolved]
  - Dyspnoea [Recovered/Resolved]
  - Product quality issue [Recovered/Resolved]
  - Drug effect decreased [Recovered/Resolved]
